FAERS Safety Report 23401635 (Version 2)
Quarter: 2024Q1

REPORT INFORMATION
  Report Type: Spontaneous
  Country: BE (occurrence: None)
  Receive Date: 20240115
  Receipt Date: 20240216
  Transmission Date: 20240409
  Serious: Yes (Other)
  Sender: FDA-Public Use
  Company Number: BE-ROCHE-3484663

PATIENT
  Sex: Female

DRUGS (1)
  1. ALECENSA [Suspect]
     Active Substance: ALECTINIB HYDROCHLORIDE
     Indication: Lung neoplasm malignant
     Dosage: 600MG (4X150 MG) /2TIMES A DAY
     Route: 065
     Dates: start: 20210623

REACTIONS (1)
  - Lung carcinoma cell type unspecified recurrent [Unknown]
